FAERS Safety Report 23845884 (Version 1)
Quarter: 2024Q2

REPORT INFORMATION
  Report Type: Spontaneous
  Country: US (occurrence: US)
  Receive Date: 20240512
  Receipt Date: 20240512
  Transmission Date: 20240716
  Serious: No
  Sender: FDA-Public Use
  Company Number: US-CIPLA LTD.-2023US05358

PATIENT

DRUGS (20)
  1. ALBUTEROL [Suspect]
     Active Substance: ALBUTEROL
     Indication: Chronic obstructive pulmonary disease
     Dosage: UNK, COUPLE OF YEARS AGO
     Route: 065
  2. ALBUTEROL [Suspect]
     Active Substance: ALBUTEROL
     Dosage: UNK, 6-7 PUFFS IN A DAY
     Dates: start: 202308
  3. FORMOTEROL FUMARATE [Concomitant]
     Active Substance: FORMOTEROL FUMARATE
     Indication: Dyspnoea
     Dosage: UNK, TID (3 TIMES A DAY)
     Route: 065
  4. TRELEGY ELLIPTA [Concomitant]
     Active Substance: FLUTICASONE FUROATE\UMECLIDINIUM BROMIDE\VILANTEROL TRIFENATATE
     Indication: Dyspnoea
     Dosage: 2 PUFFS, ONCE A DAY, QD
     Route: 065
  5. LEVALBUTEROL [Concomitant]
     Active Substance: LEVALBUTEROL
     Indication: Dyspnoea
     Dosage: UNK, TID (3 TIMES A DAY)
     Route: 065
  6. OXYGEN [Concomitant]
     Active Substance: OXYGEN
     Indication: Dyspnoea
     Dosage: 2-3 LITERS
     Route: 065
  7. MAGNESIUM [Concomitant]
     Active Substance: MAGNESIUM
     Indication: Product used for unknown indication
     Dosage: 125 MG (SHE WAS BREAKING THE TABLET IN HALF AND TAKING HALF OF IT BECAUSE IT DID NOT COME IN 100MG)
     Route: 065
  8. ALPRAZOLAM [Concomitant]
     Active Substance: ALPRAZOLAM
     Indication: Anxiety
     Dosage: 5 MILLIGRAM, QD (1 TABLET A DAY)
     Route: 065
  9. OMEPRAZOLE [Concomitant]
     Active Substance: DONEPEZIL HYDROCHLORIDE\OMEPRAZOLE\OMEPRAZOLE MAGNESIUM
     Indication: Dyspnoea
     Dosage: 20 MILLIGRAM, QD (1 CAPSULE A DAY)
     Route: 065
  10. OMEPRAZOLE [Concomitant]
     Active Substance: DONEPEZIL HYDROCHLORIDE\OMEPRAZOLE\OMEPRAZOLE MAGNESIUM
     Indication: Anxiety
  11. PREDNISONE [Concomitant]
     Active Substance: PREDNISONE
     Indication: Dyspnoea
     Dosage: 20 MILLIGRAM, QD (1 TABLET A DAY)
     Route: 065
  12. PREDNISONE [Concomitant]
     Active Substance: PREDNISONE
     Indication: Anxiety
  13. ASPIRIN [Concomitant]
     Active Substance: ASPIRIN
     Indication: Dyspnoea
     Dosage: 81 MILLIGRAM, QD (1 TABLET A DAY)
     Route: 065
  14. ASPIRIN [Concomitant]
     Active Substance: ASPIRIN
     Indication: Anxiety
  15. FLUOXETINE [Concomitant]
     Active Substance: FLUOXETINE HYDROCHLORIDE
     Indication: Dyspnoea
     Dosage: 10 MILLIGRAM, QD (1 TABLET A DAY)
     Route: 065
  16. FLUOXETINE [Concomitant]
     Active Substance: FLUOXETINE HYDROCHLORIDE
     Indication: Anxiety
  17. ATORVASTATIN [Concomitant]
     Active Substance: ATORVASTATIN
     Indication: Dyspnoea
     Dosage: 40 MILLIGRAM, QD (1 TABLET AT BEDTIME)
     Route: 065
  18. ATORVASTATIN [Concomitant]
     Active Substance: ATORVASTATIN
     Indication: Anxiety
  19. LISINOPRIL [Concomitant]
     Active Substance: LISINOPRIL
     Indication: Dyspnoea
     Dosage: 2.5 MILLIGRAM, QD (1 TABLET A DAY)
     Route: 065
  20. LISINOPRIL [Concomitant]
     Active Substance: LISINOPRIL
     Indication: Anxiety

REACTIONS (5)
  - Dyspnoea [Not Recovered/Not Resolved]
  - Drug ineffective for unapproved indication [Unknown]
  - Device delivery system issue [Unknown]
  - Off label use [Unknown]
  - Device breakage [Unknown]

NARRATIVE: CASE EVENT DATE: 20230801
